FAERS Safety Report 15895485 (Version 1)
Quarter: 2019Q1

REPORT INFORMATION
  Report Type: Spontaneous
  Country: US (occurrence: US)
  Receive Date: 20190109
  Receipt Date: 20190109
  Transmission Date: 20190417
  Serious: No
  Sender: FDA-Public Use
  Company Number: None

PATIENT
  Age: 46 Year
  Sex: Female

DRUGS (4)
  1. LETROZOLE TAB 2.5MG [Suspect]
     Active Substance: LETROZOLE
     Route: 048
     Dates: start: 20181226
  2. ZOMETA [Concomitant]
     Active Substance: ZOLEDRONIC ACID
  3. ATIVAN [Concomitant]
     Active Substance: LORAZEPAM
  4. KISQALI [Concomitant]
     Active Substance: RIBOCICLIB

REACTIONS (5)
  - Fatigue [None]
  - Pain [None]
  - Nausea [None]
  - Oedema peripheral [None]
  - Insomnia [None]

NARRATIVE: CASE EVENT DATE: 20190108
